FAERS Safety Report 20540110 (Version 1)
Quarter: 2022Q1

REPORT INFORMATION
  Report Type: Spontaneous
  Country: UZ (occurrence: UZ)
  Receive Date: 20220302
  Receipt Date: 20220302
  Transmission Date: 20220424
  Serious: Yes (Death, Other)
  Sender: FDA-Public Use
  Company Number: UZ-JNJFOC-20211128945

PATIENT
  Sex: Female
  Weight: 28 kg

DRUGS (5)
  1. SIRTURO [Suspect]
     Active Substance: BEDAQUILINE FUMARATE
     Indication: Pulmonary tuberculosis
     Dosage: 200
     Route: 048
     Dates: start: 20210118
  2. LINEZOLID [Suspect]
     Active Substance: LINEZOLID
     Indication: Pulmonary tuberculosis
     Dosage: 300
     Route: 048
     Dates: start: 20210118
  3. CLOFAZIMINE [Suspect]
     Active Substance: CLOFAZIMINE
     Indication: Pulmonary tuberculosis
     Dosage: 100
     Route: 048
     Dates: start: 20210118
  4. LEVOFLOXACIN [Suspect]
     Active Substance: LEVOFLOXACIN
     Indication: Pulmonary tuberculosis
     Dosage: 750
     Route: 048
     Dates: start: 20210118
  5. CYCLOSERINE [Suspect]
     Active Substance: CYCLOSERINE
     Indication: Pulmonary tuberculosis
     Dosage: 500
     Route: 048
     Dates: start: 20210118

REACTIONS (7)
  - Abdominal mass [Fatal]
  - Dyspnoea [Unknown]
  - Abdominal pain [Unknown]
  - Respiratory rate increased [Unknown]
  - Respiratory failure [Unknown]
  - Cachexia [Unknown]
  - Anaemia [Unknown]
